FAERS Safety Report 7602169-4 (Version None)
Quarter: 2011Q3

REPORT INFORMATION
  Report Type: 
  Country: None (occurrence: None)
  Receive Date: 20110711
  Receipt Date: 20110602
  Transmission Date: 20111222
  Serious: Yes (Hospitalization)
  Sender: FDA-Public Use
  Company Number: CN-ASTRAZENECA-2011SE33704

PATIENT
  Age: 44 Year
  Sex: Female
  Weight: 52.5 kg

DRUGS (1)
  1. NEXIUM [Suspect]
     Indication: GASTRIC CANCER
     Route: 048
     Dates: start: 20110525

REACTIONS (4)
  - GASTRIC PH DECREASED [None]
  - DRUG EFFECT DECREASED [None]
  - GASTRIC OPERATION [None]
  - OFF LABEL USE [None]
